FAERS Safety Report 6210913-6 (Version None)
Quarter: 2009Q2

REPORT INFORMATION
  Report Type: 
  Country: None (occurrence: None)
  Receive Date: 20090601
  Receipt Date: 20090522
  Transmission Date: 20091009
  Serious: Yes (Hospitalization)
  Sender: FDA-Public Use
  Company Number: PHHO2009US06452

PATIENT
  Sex: Male

DRUGS (5)
  1. RAD 666 RAD+TAB+CMAS [Suspect]
     Indication: RENAL CELL CARCINOMA
     Dosage: 10 MG / DAY
     Route: 048
     Dates: start: 20061212, end: 20090202
  2. BEVACIZUMAB [Suspect]
     Indication: RENAL CELL CARCINOMA
     Dosage: 920 MG EVERY 2 WEEKS
     Route: 042
     Dates: start: 20061216
  3. BEVACIZUMAB [Suspect]
     Dosage: 790 MG EVERY 2 WEEKS
     Route: 042
     Dates: start: 20080205, end: 20090216
  4. STEROIDS NOS [Concomitant]
  5. MELOXICAM [Concomitant]

REACTIONS (5)
  - DUODENAL ULCER HAEMORRHAGE [None]
  - HAEMATEMESIS [None]
  - HAEMORRHAGIC ANAEMIA [None]
  - RECTAL HAEMORRHAGE [None]
  - SYNCOPE [None]
